FAERS Safety Report 23214539 (Version 1)
Quarter: 2023Q4

REPORT INFORMATION
  Report Type: Spontaneous
  Country: US (occurrence: US)
  Receive Date: 20231121
  Receipt Date: 20231121
  Transmission Date: 20240110
  Serious: Yes (Other)
  Sender: FDA-Public Use
  Company Number: US-PFIZER INC-PV202300184009

PATIENT
  Age: 57 Year
  Sex: Male

DRUGS (2)
  1. TESTOSTERONE CYPIONATE [Suspect]
     Active Substance: TESTOSTERONE CYPIONATE
     Dosage: 500 MG, WEEKLY
     Route: 030
  2. TESTOSTERONE [Suspect]
     Active Substance: TESTOSTERONE
     Dosage: UNK
     Route: 048

REACTIONS (4)
  - Venous thrombosis [Unknown]
  - Adrenal haemorrhage [Unknown]
  - Primary adrenal insufficiency [Unknown]
  - Intentional product misuse [Unknown]
